FAERS Safety Report 25923205 (Version 1)
Quarter: 2025Q4

REPORT INFORMATION
  Report Type: Report from Study
  Country: US (occurrence: US)
  Receive Date: 20251015
  Receipt Date: 20251015
  Transmission Date: 20260117
  Serious: Yes (Hospitalization, Other)
  Sender: GILEAD
  Company Number: US-GILEAD-2025-0732250

PATIENT
  Sex: Male

DRUGS (1)
  1. AZTREONAM LYSINE [Suspect]
     Active Substance: AZTREONAM LYSINE
     Indication: Asthma
     Dosage: 75 MG VIA NEBULIZER THREE TIMES DAILY, USE EVERY OTHER MONTH
     Route: 055

REACTIONS (2)
  - Pneumonia [Unknown]
  - Product use in unapproved indication [Not Recovered/Not Resolved]
